FAERS Safety Report 19357079 (Version 1)
Quarter: 2021Q2

REPORT INFORMATION
  Report Type: Spontaneous
  Country: GB (occurrence: GB)
  Receive Date: 20210602
  Receipt Date: 20210602
  Transmission Date: 20210717
  Serious: Yes (Other)
  Sender: FDA-Public Use
  Company Number: GB-CURIUM-200800217

PATIENT

DRUGS (2)
  1. CARBIMAZOLE [Concomitant]
     Active Substance: CARBIMAZOLE
     Route: 064
  2. SODIUM IODIDE I 131 [Suspect]
     Active Substance: SODIUM IODIDE I-131
     Dosage: 185 MBQ, (5 MCI)
     Route: 064

REACTIONS (2)
  - Foetal exposure during pregnancy [Recovered/Resolved]
  - Blood thyroid stimulating hormone increased [Recovered/Resolved]
